FAERS Safety Report 7299552-6 (Version None)
Quarter: 2010Q4

REPORT INFORMATION
  Report Type: 
  Country: None (occurrence: None)
  Receive Date: 20101223
  Receipt Date: 20100218
  Transmission Date: 20110411
  Serious: Yes (Other)
  Sender: FDA-Public Use
  Company Number: 304653

PATIENT
  Age: 13 Year
  Sex: Female
  Weight: 49.4 kg

DRUGS (2)
  1. LEVEMIR [Suspect]
     Indication: TYPE 1 DIABETES MELLITUS
     Dosage: 24 IU, BID, SUBCUTANEOUS
     Route: 058
     Dates: start: 20100114
  2. HUMALOG [Suspect]
     Indication: TYPE 1 DIABETES MELLITUS
     Dosage: SLIDING SCALE, SC
     Route: 058
     Dates: start: 20100118

REACTIONS (3)
  - BLOOD GLUCOSE INCREASED [None]
  - DIABETIC KETOACIDOSIS [None]
  - URINE OUTPUT DECREASED [None]
